FAERS Safety Report 8598161-6 (Version None)
Quarter: 2012Q3

REPORT INFORMATION
  Report Type: 
  Country: None (occurrence: None)
  Receive Date: 20120816
  Receipt Date: 20120814
  Transmission Date: 20120928
  Serious: Yes (Other)
  Sender: FDA-Public Use
  Company Number: PHHY2012JP070147

PATIENT
  Age: 47 Year
  Sex: Female

DRUGS (5)
  1. CLOBAZAM [Suspect]
     Indication: COMPLEX PARTIAL SEIZURES
  2. GABAPENTIN [Concomitant]
     Indication: COMPLEX PARTIAL SEIZURES
  3. CARBAMAZEPINE [Suspect]
     Dosage: 800 MG/DAY
  4. TOPIRAMATE [Suspect]
     Indication: COMPLEX PARTIAL SEIZURES
     Dosage: 150 MG/DAY
  5. CARBAMAZEPINE [Suspect]
     Indication: COMPLEX PARTIAL SEIZURES
     Dosage: UNK UKN, UNK

REACTIONS (5)
  - MIDDLE INSOMNIA [None]
  - COMPLEX PARTIAL SEIZURES [None]
  - CHEST DISCOMFORT [None]
  - STATUS EPILEPTICUS [None]
  - TONIC CLONIC MOVEMENTS [None]
